FAERS Safety Report 5894175-5 (Version None)
Quarter: 2008Q3

REPORT INFORMATION
  Report Type: 
  Country: None (occurrence: None)
  Receive Date: 20080922
  Receipt Date: 20080917
  Transmission Date: 20090109
  Serious: Yes (Hospitalization, Disabling, Other)
  Sender: FDA-Public Use
  Company Number: 2008SP011829

PATIENT
  Age: 29 Year
  Sex: Male

DRUGS (4)
  1. PEG-INTRON [Suspect]
     Indication: HEPATITIS C
     Dosage: 150 MCG; QW;
     Dates: start: 20080307
  2. REBETOL [Suspect]
     Indication: HEPATITIS C
     Dosage: 600 MG; BID; PO
     Route: 048
     Dates: start: 20080307
  3. WELLBUTRIN [Suspect]
     Indication: DEPRESSION
  4. PAXIL [Suspect]
     Indication: DEPRESSION

REACTIONS (13)
  - AGGRESSION [None]
  - ALCOHOL USE [None]
  - CHEST DISCOMFORT [None]
  - CHILLS [None]
  - DEPRESSION [None]
  - DIZZINESS [None]
  - DRUG DEPENDENCE [None]
  - HALLUCINATION, VISUAL [None]
  - INSOMNIA [None]
  - IRRITABILITY [None]
  - PAIN [None]
  - PALPITATIONS [None]
  - PYREXIA [None]
